FAERS Safety Report 11459818 (Version 6)
Quarter: 2015Q4

REPORT INFORMATION
  Report Type: Spontaneous
  Country: US (occurrence: None)
  Receive Date: 20150904
  Receipt Date: 20151102
  Transmission Date: 20160304
  Serious: Yes (Other)
  Sender: FDA-Public Use
  Company Number: US-MDT-ADR-2015-01716

PATIENT
  Age: 49 Year
  Sex: Female

DRUGS (2)
  1. COMPOUNDED BACLOFEN INTRATHECAL (200 MCG/ML) [Suspect]
     Active Substance: BACLOFEN
     Dosage: 84 MCG/DAY
  2. MORPHINE INTRATHECAL (50 MG/ML) [Suspect]
     Active Substance: MORPHINE
     Dosage: 21 MG/DAY

REACTIONS (12)
  - Memory impairment [None]
  - Back pain [None]
  - Sciatica [None]
  - Drug withdrawal syndrome [None]
  - Overdose [None]
  - Muscle spasms [None]
  - Fall [None]
  - Pain in extremity [None]
  - Drug hypersensitivity [None]
  - Seizure [None]
  - Neck pain [None]
  - Unresponsive to stimuli [None]
